FAERS Safety Report 4995993-8 (Version None)
Quarter: 2006Q2

REPORT INFORMATION
  Report Type: 
  Country: None (occurrence: None)
  Receive Date: 20060508
  Receipt Date: 20060428
  Transmission Date: 20061013
  Serious: Yes (Hospitalization)
  Sender: FDA-Public Use
  Company Number: US-MERCK-0605USA00061

PATIENT
  Age: 80 Year
  Sex: Female
  Weight: 85 kg

DRUGS (16)
  1. VIOXX [Suspect]
     Indication: ARTHRITIS
     Route: 048
     Dates: start: 19991001, end: 20010301
  2. MEVACOR [Concomitant]
     Route: 065
  3. CARAFATE [Concomitant]
     Route: 065
  4. GLYNASE [Concomitant]
     Route: 065
  5. RELAFEN [Concomitant]
     Route: 065
  6. ACETAMINOPHEN AND PROPOXYPHENE NAPSYLATE [Concomitant]
     Route: 065
  7. DARVOCET [Concomitant]
     Route: 065
  8. ADVIL [Concomitant]
     Route: 065
  9. COUMADIN [Concomitant]
     Route: 065
  10. LASIX [Concomitant]
     Route: 065
  11. GLIPIZIDE [Concomitant]
     Route: 065
  12. AMIODARONE [Concomitant]
     Route: 065
  13. BRETHINE [Concomitant]
     Route: 065
  14. BELLADONNA [Concomitant]
     Route: 065
  15. ASPIRIN [Concomitant]
     Route: 065
  16. ZOCOR [Concomitant]
     Route: 065

REACTIONS (1)
  - CEREBROVASCULAR ACCIDENT [None]
